FAERS Safety Report 5120923-8 (Version None)
Quarter: 2006Q4

REPORT INFORMATION
  Report Type: 
  Country: None (occurrence: None)
  Receive Date: 20061003
  Receipt Date: 20061003
  Transmission Date: 20070319
  Serious: No
  Sender: FDA-Public Use
  Company Number: None

PATIENT
  Age: 86 Year
  Sex: Female
  Weight: 90.7194 kg

DRUGS (1)
  1. AMBIEN [Suspect]
     Indication: INSOMNIA
     Dosage: 1 TABLET AT BEDTIME AS NEEDED PO
     Route: 048
     Dates: start: 20060501, end: 20060927

REACTIONS (1)
  - SLEEP WALKING [None]
